FAERS Safety Report 18322446 (Version 1)
Quarter: 2020Q3

REPORT INFORMATION
  Report Type: Report from Study
  Country: IT (occurrence: IT)
  Receive Date: 20200929
  Receipt Date: 20200929
  Transmission Date: 20201103
  Serious: Yes (Other)
  Sender: FDA-Public Use
  Company Number: IT-TEVA-2020-IT-1832910

PATIENT
  Age: 6 Decade
  Sex: Male

DRUGS (14)
  1. CYCLOPHOSPHAMIDE. [Suspect]
     Active Substance: CYCLOPHOSPHAMIDE
     Indication: HODGKIN^S DISEASE
     Dosage: RECEIVED EVERY DAY 1; ACCORDING TO BEACOPP PROTOCOL (AT STANDARD DOSES).
     Route: 065
  2. BLEOMYCIN [Suspect]
     Active Substance: BLEOMYCIN SULFATE
     Indication: HODGKIN^S DISEASE
     Dosage: RECEIVED EVERY DAY 8; ACCORDING TO BEACOPP PROTOCOL (AT STANDARD DOSES).
     Route: 065
  3. PROCARBAZINE [Suspect]
     Active Substance: PROCARBAZINE
     Indication: HODGKIN^S DISEASE
     Dosage: RECEIVED EVERY DAY 1?7; ACCORDING TO BEACOPP PROTOCOL (AT STANDARD DOSES).
     Route: 048
  4. DOXORUBICIN [Suspect]
     Active Substance: DOXORUBICIN
     Indication: HODGKIN^S DISEASE
     Dosage: RECEIVED EVERY DAY 1; ACCORDING TO BEACOPP PROTOCOL (AT STANDARD DOSES).
     Route: 065
  5. VINCRISTINE [Suspect]
     Active Substance: VINCRISTINE
     Indication: LYMPHOMA
     Dosage: RECEIVED EVERY DAYS 8 AND 21; ACCORDING TO THE MACOP?B PROTOCOL.
     Route: 065
  6. CYCLOPHOSPHAMIDE. [Suspect]
     Active Substance: CYCLOPHOSPHAMIDE
     Indication: LYMPHOMA
     Dosage: RECEIVED EVERY DAY 1 AND 15; ACCORDING TO THE MACOP?B PROTOCOL.
     Route: 065
  7. VERAPAMIL [Suspect]
     Active Substance: VERAPAMIL HYDROCHLORIDE
     Indication: PEYRONIE^S DISEASE
     Route: 065
  8. ETOPOSIDE. [Suspect]
     Active Substance: ETOPOSIDE
     Indication: HODGKIN^S DISEASE
     Dosage: RECEIVED EVERY DAY 1?3; ACCORDING TO BEACOPP PROTOCOL (AT STANDARD DOSES).
     Route: 065
  9. METHOTREXATE. [Suspect]
     Active Substance: METHOTREXATE
     Indication: LYMPHOMA
     Dosage: RECEIVED EVERY DAY 8; ACCORDING TO THE MACOP?B PROTOCOL.
     Route: 065
  10. DOXORUBICIN [Suspect]
     Active Substance: DOXORUBICIN
     Indication: LYMPHOMA
     Dosage: RECEIVED EVERY DAY 1 AND 15; ACCORDING TO THE MACOP?B PROTOCOL.
     Route: 065
  11. VINCRISTINE [Suspect]
     Active Substance: VINCRISTINE
     Indication: HODGKIN^S DISEASE
     Dosage: RECEIVED EVERY DAY 8; ACCORDING TO BEACOPP PROTOCOL (AT STANDARD DOSES).
     Route: 065
  12. BLEOMYCIN [Suspect]
     Active Substance: BLEOMYCIN SULFATE
     Indication: LYMPHOMA
     Dosage: RECEIVED EVERY DAY 21; ACCORDING TO THE MACOP?B PROTOCOL.
     Route: 065
  13. PREDNISONE. [Suspect]
     Active Substance: PREDNISONE
     Indication: HODGKIN^S DISEASE
     Dosage: RECEIVED EVERY DAY 1?14; ACCORDING TO BEACOPP PROTOCOL (AT STANDARD DOSES).
     Route: 048
  14. VERAPAMIL [Suspect]
     Active Substance: VERAPAMIL HYDROCHLORIDE
     Indication: CONDITION AGGRAVATED

REACTIONS (4)
  - Peyronie^s disease [Not Recovered/Not Resolved]
  - Drug ineffective [Unknown]
  - Condition aggravated [Not Recovered/Not Resolved]
  - Hepatotoxicity [Unknown]
